FAERS Safety Report 16361544 (Version 4)
Quarter: 2020Q3

REPORT INFORMATION
  Report Type: Spontaneous
  Country: US (occurrence: US)
  Receive Date: 20190528
  Receipt Date: 20200812
  Transmission Date: 20201102
  Serious: No
  Sender: FDA-Public Use
  Company Number: US-PFIZER INC-2019220876

PATIENT
  Age: 75 Year
  Sex: Female
  Weight: 81.65 kg

DRUGS (3)
  1. DILANTIN [Suspect]
     Active Substance: PHENYTOIN
     Indication: SEIZURE
     Dosage: 100 MG, 2X/DAY
  2. DILANTIN [Suspect]
     Active Substance: PHENYTOIN
     Dosage: 100 MG
  3. DILANTIN [Suspect]
     Active Substance: PHENYTOIN
     Dosage: 200 MG, DAILY (100MG 2 AT NIGHT BY MOUTH)
     Route: 048
     Dates: start: 1975

REACTIONS (4)
  - Therapeutic product effect incomplete [Unknown]
  - Headache [Unknown]
  - Off label use [Unknown]
  - Product dose omission issue [Unknown]
